FAERS Safety Report 6132534-6 (Version None)
Quarter: 2009Q1

REPORT INFORMATION
  Report Type: 
  Country: None (occurrence: None)
  Receive Date: 20090325
  Receipt Date: 20090319
  Transmission Date: 20090719
  Serious: Yes (Death)
  Sender: FDA-Public Use
  Company Number: US-GENENTECH-277751

PATIENT
  Age: 61 Year
  Sex: Male
  Weight: 62.9 kg

DRUGS (5)
  1. BEVACIZUMAB [Suspect]
     Indication: RENAL CELL CARCINOMA
     Dosage: 5 MG/KG, DAYS 1+15/Q28D
     Route: 042
     Dates: start: 20080401, end: 20080610
  2. CCI-779 [Suspect]
     Indication: RENAL CELL CARCINOMA
     Dosage: 10 MG, D1,8,15,22/Q28D
     Route: 042
     Dates: start: 20080401, end: 20080617
  3. A + D OINTMENT [Concomitant]
     Indication: DRUG USE FOR UNKNOWN INDICATION
  4. DIPHENHYDRAMINE [Concomitant]
     Indication: DRUG USE FOR UNKNOWN INDICATION
  5. ZOMETA [Concomitant]
     Indication: DRUG USE FOR UNKNOWN INDICATION

REACTIONS (1)
  - DEATH [None]
